FAERS Safety Report 20332654 (Version 1)
Quarter: 2022Q1

REPORT INFORMATION
  Report Type: Spontaneous
  Country: MX (occurrence: MX)
  Receive Date: 20220113
  Receipt Date: 20220113
  Transmission Date: 20220423
  Serious: Yes (Other)
  Sender: FDA-Public Use
  Company Number: MX-AMGEN-MEXSP2022002573

PATIENT

DRUGS (3)
  1. ROMIPLOSTIM [Suspect]
     Active Substance: ROMIPLOSTIM
     Indication: Immune thrombocytopenia
     Dosage: UNK
     Route: 065
  2. RITUXIMAB [Suspect]
     Active Substance: RITUXIMAB
     Indication: Immune thrombocytopenia
     Dosage: 100 MILLIGRAM, QWK
     Route: 065
  3. DEXAMETHASONE [Concomitant]
     Active Substance: DEXAMETHASONE
     Dosage: 40 MILLIGRAM

REACTIONS (7)
  - Immune thrombocytopenia [Unknown]
  - Thrombocytosis [Unknown]
  - Therapy partial responder [Unknown]
  - Therapy non-responder [Unknown]
  - Soft tissue infection [Unknown]
  - Off label use [Unknown]
  - Myalgia [Unknown]
